FAERS Safety Report 5952829-6 (Version None)
Quarter: 2008Q4

REPORT INFORMATION
  Report Type: 
  Country: None (occurrence: None)
  Receive Date: 20081114
  Receipt Date: 20081106
  Transmission Date: 20090506
  Serious: Yes (Other)
  Sender: FDA-Public Use
  Company Number: CH-JNJFOC-20081101130

PATIENT
  Age: 20 Year
  Sex: Male

DRUGS (5)
  1. RISPERDAL [Suspect]
     Indication: ABNORMAL BEHAVIOUR
     Route: 048
  2. LAMICTAL [Concomitant]
     Indication: CONVULSION
     Route: 065
  3. KEPPRA [Concomitant]
     Indication: CONVULSION
     Route: 065
  4. RIVOTRIL [Concomitant]
     Indication: CONVULSION
     Route: 065
  5. ACTRAPID [Concomitant]
     Indication: DIABETES MELLITUS
     Route: 065

REACTIONS (3)
  - LEUKOPENIA [None]
  - MYELODYSPLASTIC SYNDROME [None]
  - THROMBOCYTOPENIA [None]
